FAERS Safety Report 22526744 (Version 2)
Quarter: 2023Q2

REPORT INFORMATION
  Report Type: Spontaneous
  Country: FR (occurrence: FR)
  Receive Date: 20230606
  Receipt Date: 20230622
  Transmission Date: 20230721
  Serious: Yes (Hospitalization, Other)
  Sender: FDA-Public Use
  Company Number: None

PATIENT
  Age: 24 Year
  Sex: Male

DRUGS (9)
  1. ROCURONIUM BROMIDE [Suspect]
     Active Substance: ROCURONIUM BROMIDE
     Indication: Induction of anaesthesia
     Dosage: UNK
     Route: 042
     Dates: start: 20220720
  2. CEFAZOLIN SODIUM [Concomitant]
     Active Substance: CEFAZOLIN SODIUM
     Indication: Antibiotic prophylaxis
     Dosage: UNK
     Route: 042
     Dates: start: 20220720
  3. CLINDAMYCIN PHOSPHATE [Concomitant]
     Active Substance: CLINDAMYCIN PHOSPHATE
     Indication: Anaesthesia
     Dosage: UNK
     Route: 042
     Dates: start: 20220720
  4. DEXAMETHASONE [Concomitant]
     Active Substance: DEXAMETHASONE
     Dosage: 4 MG/1 ML
     Route: 042
     Dates: start: 20220720
  5. TRANEXAMIC ACID [Concomitant]
     Active Substance: TRANEXAMIC ACID
     Indication: Antibiotic prophylaxis
     Dosage: 0.5 G/5 ML
     Route: 042
     Dates: start: 20220720
  6. KETAMINE [Concomitant]
     Active Substance: KETAMINE
     Indication: Anaesthesia
     Dosage: 50 MG/5 ML
     Route: 042
     Dates: start: 20220720
  7. LIDOCAINE [Concomitant]
     Active Substance: LIDOCAINE
     Indication: Anaesthesia
     Dosage: UNK
     Route: 042
     Dates: start: 20220720
  8. PROPOFOL LIPURO [Concomitant]
     Active Substance: PROPOFOL
     Indication: Anaesthesia
     Dosage: 20 MG/ML
     Route: 042
     Dates: start: 20220720
  9. SUFENTANIL [Concomitant]
     Active Substance: SUFENTANIL
     Indication: Anaesthesia
     Dosage: UNK
     Route: 042
     Dates: start: 20220720

REACTIONS (1)
  - Angioedema [Recovered/Resolved]

NARRATIVE: CASE EVENT DATE: 20220720
